FAERS Safety Report 21263942 (Version 1)
Quarter: 2022Q3

REPORT INFORMATION
  Report Type: Spontaneous
  Country: AT (occurrence: AT)
  Receive Date: 20220829
  Receipt Date: 20220829
  Transmission Date: 20221027
  Serious: Yes (Other)
  Sender: FDA-Public Use
  Company Number: AT-NOVARTISPH-NVSC2022AT190774

PATIENT
  Age: 65 Year
  Sex: Female
  Weight: 89 kg

DRUGS (11)
  1. ANASTROZOLE [Suspect]
     Active Substance: ANASTROZOLE
     Indication: HER2 positive breast cancer
     Dosage: 1 MG
     Route: 048
     Dates: start: 20170324
  2. PERTUZUMAB [Suspect]
     Active Substance: PERTUZUMAB
     Indication: HER2 positive breast cancer
     Dosage: 840 MG, Q3W (MOST RECENT DOSE PRIOR TO THE EVENT: 14/APR/2017, 14/JUL/2017, 23/JUL/2018, 14/MAY/2021
     Route: 042
     Dates: start: 20170324, end: 20170324
  3. TRASTUZUMAB [Suspect]
     Active Substance: TRASTUZUMAB
     Indication: HER2 positive breast cancer
     Dosage: 712 MG, Q3W (MOST RECENT DOSE PRIOR TO THE EVENT: 14/APR/2017, 08/JUN/2018, 14/JUL/2018, 23/JUL/2018
     Route: 042
     Dates: start: 20170324
  4. DENOSUMAB [Suspect]
     Active Substance: DENOSUMAB
     Indication: HER2 positive breast cancer
     Dosage: 120 MG, QMO
     Route: 058
     Dates: start: 20170505, end: 20180329
  5. DENOSUMAB [Suspect]
     Active Substance: DENOSUMAB
     Dosage: 120 MG, QMO
     Route: 058
     Dates: start: 20200310, end: 20201127
  6. DENOSUMAB [Suspect]
     Active Substance: DENOSUMAB
     Dosage: 120 MG, QMO
     Route: 058
     Dates: start: 20210302
  7. PANTOPRAZOLE [Concomitant]
     Active Substance: PANTOPRAZOLE
     Indication: Product used for unknown indication
     Dosage: UNK
     Route: 065
  8. DEXAMETHASONE [Concomitant]
     Active Substance: DEXAMETHASONE
     Indication: Product used for unknown indication
     Dosage: UNK
     Route: 065
     Dates: start: 20170414
  9. DIMETHINDENE [Concomitant]
     Active Substance: DIMETHINDENE
     Indication: Chills
     Dosage: UNK
     Route: 065
     Dates: start: 20140414
  10. RANITIDINE HYDROCHLORIDE [Concomitant]
     Active Substance: RANITIDINE HYDROCHLORIDE
     Indication: Chills
     Dosage: UNK
     Route: 065
     Dates: start: 20170414
  11. HYDROCHLOROTHIAZIDE\RAMIPRIL [Concomitant]
     Active Substance: HYDROCHLOROTHIAZIDE\RAMIPRIL
     Indication: Product used for unknown indication
     Dosage: UNK
     Route: 065

REACTIONS (1)
  - Circulatory collapse [Recovered/Resolved]

NARRATIVE: CASE EVENT DATE: 20170711
